FAERS Safety Report 8357910-2 (Version None)
Quarter: 2012Q2

REPORT INFORMATION
  Report Type: 
  Country: None (occurrence: None)
  Receive Date: 20120514
  Receipt Date: 20120510
  Transmission Date: 20120825
  Serious: Yes (Death, Hospitalization, Other)
  Sender: FDA-Public Use
  Company Number: NZ-B.I. PHARMACEUTICALS,INC./RIDGEFIELD-2012-AU-00485AU

PATIENT
  Sex: Female
  Weight: 82 kg

DRUGS (6)
  1. SIMVASTATIN [Concomitant]
  2. DIGOXIN [Concomitant]
  3. METOPROLOL TARTRATE [Concomitant]
  4. CITALOPRAM HYDROBROMIDE [Concomitant]
  5. PRADAXA [Suspect]
     Indication: ATRIAL FIBRILLATION
     Dosage: 300 MG
     Dates: start: 20110701, end: 20111201
  6. FUROSEMIDE [Concomitant]

REACTIONS (2)
  - CEREBROVASCULAR ACCIDENT [None]
  - SUBDURAL HAEMATOMA [None]
